FAERS Safety Report 16530647 (Version 1)
Quarter: 2019Q3

REPORT INFORMATION
  Report Type: Spontaneous
  Country: PL (occurrence: PL)
  Receive Date: 20190704
  Receipt Date: 20190704
  Transmission Date: 20191004
  Serious: Yes (Death)
  Sender: FDA-Public Use
  Company Number: PL-TEVA-2019-PL-1070999

PATIENT
  Age: 56 Year
  Sex: Male
  Weight: 68 kg

DRUGS (2)
  1. GABAPENTIN TEVA [Suspect]
     Active Substance: GABAPENTIN
     Route: 048
     Dates: start: 201404
  2. GABAPENTIN TEVA [Suspect]
     Active Substance: GABAPENTIN
     Indication: TRIGEMINAL NEURITIS
     Route: 048
     Dates: start: 201604

REACTIONS (1)
  - Completed suicide [Fatal]

NARRATIVE: CASE EVENT DATE: 20160602
